FAERS Safety Report 4605902-9 (Version None)
Quarter: 2005Q1

REPORT INFORMATION
  Report Type: 
  Country: None (occurrence: None)
  Receive Date: 20050311
  Receipt Date: 20050226
  Transmission Date: 20050727
  Serious: Yes (Life-Threatening, Hospitalization)
  Sender: FDA-Public Use
  Company Number: GB-JNJFOC-20050300014

PATIENT
  Age: 14 Year
  Sex: Female
  Weight: 60 kg

DRUGS (7)
  1. NORETHISTERONE [Suspect]
     Indication: MENORRHAGIA
     Route: 049
  2. METHOTREXATE [Concomitant]
     Indication: ACUTE LYMPHOCYTIC LEUKAEMIA
     Route: 049
  3. MERCAPTOPURINE ANHYDROUS [Concomitant]
     Indication: ACUTE LYMPHOCYTIC LEUKAEMIA
     Route: 049
  4. COTRIM [Concomitant]
     Route: 049
  5. COTRIM [Concomitant]
     Indication: PROPHYLAXIS
     Route: 049
  6. CALCICHEW D3 [Concomitant]
     Indication: OSTEOPOROSIS
     Route: 049
  7. VINCRISTINE [Concomitant]
     Indication: ACUTE LYMPHOCYTIC LEUKAEMIA
     Route: 042

REACTIONS (1)
  - EMBOLISM [None]
